FAERS Safety Report 24654879 (Version 3)
Quarter: 2024Q4

REPORT INFORMATION
  Report Type: Spontaneous
  Country: US (occurrence: US)
  Receive Date: 20241122
  Receipt Date: 20241203
  Transmission Date: 20250114
  Serious: Yes (Hospitalization)
  Sender: BRISTOL-MYERS SQUIBB COMPANY
  Company Number: US-BRISTOL-MYERS SQUIBB COMPANY-2024-181274

PATIENT
  Age: 69 Year
  Sex: Male
  Weight: 102 kg

DRUGS (9)
  1. ELIQUIS [Suspect]
     Active Substance: APIXABAN
     Indication: Atrial fibrillation
     Dosage: TAKE 1 TABLET (5 MG) BY MOUTH IN THE MORNING AND AT BEDTIME
     Route: 048
     Dates: start: 20240724
  2. VYNDAMAX [Suspect]
     Active Substance: TAFAMIDIS
     Indication: Cardiac amyloidosis
     Dosage: ONE 61 MG TAFAMIDIS CAPSULE ORALLY ONCE DAILY
     Route: 048
     Dates: start: 20240916
  3. VYNDAMAX [Suspect]
     Active Substance: TAFAMIDIS
     Indication: Heart failure with preserved ejection fraction
     Route: 048
  4. VYNDAMAX [Suspect]
     Active Substance: TAFAMIDIS
     Indication: Amyloidosis
  5. ALDACTONE [Concomitant]
     Active Substance: SPIRONOLACTONE
     Indication: Product used for unknown indication
     Dosage: SIG: TAKE 0.5 TABLETS (12.5 MG) BY MOUTH 1 (ONE) TIME EACH DAY?DISPENSE: 15 TABLET?REFILL: 0
     Route: 048
     Dates: start: 20240630, end: 20241111
  6. AMIODARONE [Concomitant]
     Active Substance: AMIODARONE
     Indication: Product used for unknown indication
  7. VISTARIL [Concomitant]
     Active Substance: HYDROXYZINE PAMOATE
     Indication: Anxiety
     Dosage: SIG: TAKE 1 CAPSULE (100 MG) BY MOUTH AT BEDTIME AS NEEDED FOR ANXIETY?DISPENSE: 30 CAPSULE?REFILL:
     Route: 048
  8. PROTONIX [Concomitant]
     Active Substance: PANTOPRAZOLE SODIUM
     Indication: Product used for unknown indication
     Dosage: 40 MG EC TABLET?TAKE 1 TABLET (40 MG) BY MOUTH BEFORE BREAKFAST. ?DO NOT CRUSH, CHEW, OR SPLIT
     Route: 048
     Dates: start: 20241015, end: 20241107
  9. LYRICA [Concomitant]
     Active Substance: PREGABALIN
     Indication: Product used for unknown indication
     Dosage: TAKE 1 CAPSULE (25 MG) BY MOUTH IN THE MORNING AND AT BEDTIME
     Route: 048
     Dates: start: 20241015

REACTIONS (8)
  - Oedema peripheral [Unknown]
  - Abdominal pain [Unknown]
  - Vision blurred [Unknown]
  - Diplopia [Unknown]
  - Muscular weakness [Unknown]
  - Flank pain [Unknown]
  - Headache [Unknown]
  - Myalgia [Unknown]

NARRATIVE: CASE EVENT DATE: 20241101
